FAERS Safety Report 18651840 (Version 2)
Quarter: 2021Q2

REPORT INFORMATION
  Report Type: Spontaneous
  Country: US (occurrence: US)
  Receive Date: 20201222
  Receipt Date: 20210503
  Transmission Date: 20210717
  Serious: No
  Sender: FDA-Public Use
  Company Number: US-MYLANLABS-2020M1103647

PATIENT
  Age: 66 Year
  Sex: Female
  Weight: 39 kg

DRUGS (2)
  1. EPIPEN [Suspect]
     Active Substance: EPINEPHRINE
     Indication: URTICARIA
     Dosage: UNK
     Route: 003
     Dates: start: 20201126
  2. EPINEPHRINE INJECTION USP AUTO?INJECTOR [Suspect]
     Active Substance: EPINEPHRINE
     Indication: URTICARIA
     Dosage: 0.3 MILLIGRAM, Q3W
     Route: 003
     Dates: start: 20201126

REACTIONS (1)
  - Product quality issue [None]

NARRATIVE: CASE EVENT DATE: 20201126
